FAERS Safety Report 7805543-6 (Version None)
Quarter: 2011Q4

REPORT INFORMATION
  Report Type: 
  Country: None (occurrence: None)
  Receive Date: 20111010
  Receipt Date: 20110930
  Transmission Date: 20120403
  Serious: Yes (Hospitalization)
  Sender: FDA-Public Use
  Company Number: US-ASTRAZENECA-2011SE58864

PATIENT
  Sex: Female

DRUGS (1)
  1. NEXIUM [Suspect]
     Route: 048

REACTIONS (12)
  - CHEST PAIN [None]
  - DYSPEPSIA [None]
  - NASAL DISCOMFORT [None]
  - EAR DISCOMFORT [None]
  - ORAL DISCOMFORT [None]
  - VOMITING [None]
  - DRUG DOSE OMISSION [None]
  - COUGH [None]
  - CHOKING [None]
  - DYSPNOEA [None]
  - HEADACHE [None]
  - RETCHING [None]
